FAERS Safety Report 8209580-1 (Version None)
Quarter: 2012Q1

REPORT INFORMATION
  Report Type: 
  Country: None (occurrence: None)
  Receive Date: 20120227
  Receipt Date: 20111229
  Transmission Date: 20120608
  Serious: No
  Sender: FDA-Public Use
  Company Number: 342233

PATIENT
  Age: 15 Year
  Sex: Female

DRUGS (2)
  1. VICTOZA [Suspect]
     Indication: INSULIN RESISTANCE
     Dosage: SUBCUTANEOUS
     Route: 058
     Dates: start: 20110901
  2. METFORMIN HCL [Suspect]
     Indication: INSULIN RESISTANCE
     Dosage: ORAL
     Route: 048
     Dates: start: 20100101

REACTIONS (3)
  - NAUSEA [None]
  - DIARRHOEA [None]
  - HEADACHE [None]
